FAERS Safety Report 8652205 (Version 4)
Quarter: 2013Q1

REPORT INFORMATION
  Report Type: Report from Study
  Country: DE (occurrence: NL)
  Receive Date: 20120706
  Receipt Date: 20130125
  Transmission Date: 20140127
  Serious: Yes (Death)
  Sender: FDA-Public Use
  Company Number: DE-GENZYME-201021821GPV

PATIENT
  Age: 62 Year
  Sex: Male
  Weight: 78 kg

DRUGS (12)
  1. CAMPATH [Suspect]
     Indication: T-CELL LYMPHOMA
     Dosage: DOSE ESCALATION VIA 10 / 20 / 30 MG PER DAY ON 3 CONSECUTIVE DAYS IN CYCLE 1
     Route: 058
     Dates: start: 20091105, end: 20091230
  2. CAMPATH [Suspect]
     Dosage: A-CHOP-14, TREATMENT DAYS 1 AND 2 IN CYCLES 2 TO 6 EVERY 2 WEEKS
     Route: 058
     Dates: start: 20091106, end: 20091230
  3. PREDNISONE [Suspect]
     Indication: T-CELL LYMPHOMA
     Dosage: A-CHOP-14, TREATMENT DAYS 1-5  PER CYCLE EVERY 2 WEEKS
     Route: 048
     Dates: start: 20091105, end: 20091230
  4. CYCLOPHOSPHAMIDE [Suspect]
     Indication: T-CELL LYMPHOMA
     Dosage: A-CHOP-14, TREATMENT DAY 1 PER CYCLE
     Route: 042
     Dates: start: 20091105, end: 20091230
  5. DOXORUBICINE [Suspect]
     Indication: T-CELL LYMPHOMA
     Dosage: A-CHOP-14, TREATMENT DAY 1 PER CYCLE
     Route: 042
     Dates: start: 20091105, end: 20091230
  6. VINCRISTINE [Suspect]
     Indication: T-CELL LYMPHOMA
     Dosage: A-CHOP-14, TREATMENT DAY 1 PER CYCLE
     Route: 042
     Dates: start: 20091105, end: 20091230
  7. PEGFILGRASTIM [Suspect]
     Indication: T-CELL LYMPHOMA
     Dosage: A-CHOP-14, ON TREATMENT DAY 4 PER CYCLE
     Route: 058
     Dates: start: 20091108, end: 20091230
  8. PEGFILGRASTIM [Suspect]
     Indication: PROPHYLAXIS
  9. TRIMETHOPRIM/SULFAMETHOXAZOL [Concomitant]
     Indication: INFECTION PROPHYLAXIS
     Dosage: 420 MG, QD
     Route: 048
     Dates: start: 200911, end: 20100118
  10. PREDNISONE [Concomitant]
     Indication: HYPEREOSINOPHILIC SYNDROME
     Dosage: UNK
     Route: 065
  11. VALACICLOVIR [Concomitant]
     Indication: INFECTION PROPHYLAXIS
     Dosage: 500 MG TID
     Route: 048
     Dates: start: 200911, end: 20100118
  12. FLUCONAZOLE [Concomitant]
     Indication: INFECTION PROPHYLAXIS
     Dosage: 400 MG, QD
     Route: 048
     Dates: start: 200911, end: 20100118

REACTIONS (6)
  - Renal failure [Fatal]
  - Hepatic failure [Fatal]
  - Adenovirus infection [Fatal]
  - Vomiting [Unknown]
  - Nausea [Unknown]
  - Peripheral sensory neuropathy [Fatal]
